FAERS Safety Report 5999787-6 (Version None)
Quarter: 2008Q4

REPORT INFORMATION
  Report Type: 
  Country: None (occurrence: None)
  Receive Date: 20081215
  Receipt Date: 20081208
  Transmission Date: 20090506
  Serious: Yes (Other)
  Sender: FDA-Public Use
  Company Number: US-ASTRAZENECA-2008UW27271

PATIENT
  Age: 71 Year
  Sex: Female

DRUGS (1)
  1. SEROQUEL [Suspect]
     Route: 048
     Dates: start: 20061208

REACTIONS (3)
  - FALL [None]
  - HIP FRACTURE [None]
  - NERVOUS SYSTEM DISORDER [None]
